FAERS Safety Report 8905391 (Version 1)
Quarter: 2012Q4

REPORT INFORMATION
  Report Type: 
  Country: CO (occurrence: CO)
  Receive Date: 20121112
  Receipt Date: 20121112
  Transmission Date: 20130627
  Serious: Yes (Other)
  Sender: FDA-Public Use
  Company Number: CO-MERCK-1210COL009273

PATIENT
  Age: 53 Year
  Sex: Male

DRUGS (7)
  1. PEG-INTRON [Suspect]
     Indication: HEPATITIS
     Dosage: 100 Microgram, qw
     Route: 058
     Dates: start: 20120609
  2. VICTRELIS [Suspect]
     Indication: HEPATITIS
     Dosage: 800 mg, tid
     Dates: start: 20120609
  3. RIBAVIRIN [Suspect]
     Dosage: UNK
  4. ENALAPRIL MALEATE [Concomitant]
     Dosage: 10 mg, q12h
  5. EUGLUCON [Concomitant]
     Dosage: 5 mg, qd
  6. METFORMIN [Concomitant]
     Dosage: 850 mg, qd
  7. CENTRUM (MINERALS (UNSPECIFIED) (+) VITAMINS (UNSPECIFIED)) [Concomitant]
     Dosage: 1 DF, qd

REACTIONS (1)
  - Asthenia [Recovered/Resolved]
